FAERS Safety Report 8098871-3 (Version None)
Quarter: 2012Q1

REPORT INFORMATION
  Report Type: 
  Country: None (occurrence: None)
  Receive Date: 20120129
  Receipt Date: 20111001
  Transmission Date: 20120608
  Serious: No
  Sender: FDA-Public Use
  Company Number: US-ABBOTT-11P-163-0860369-00

PATIENT
  Age: 35 Year
  Sex: Female

DRUGS (2)
  1. HUMIRA [Suspect]
     Indication: PSORIASIS
     Dates: start: 20100101
  2. FUROSEMIDE [Concomitant]
     Indication: OEDEMA PERIPHERAL

REACTIONS (3)
  - BRONCHITIS [None]
  - SINUSITIS [None]
  - OROPHARYNGEAL PAIN [None]
